FAERS Safety Report 17161639 (Version 1)
Quarter: 2019Q4

REPORT INFORMATION
  Report Type: Spontaneous
  Country: IT (occurrence: IT)
  Receive Date: 20191217
  Receipt Date: 20191217
  Transmission Date: 20200122
  Serious: Yes (Hospitalization, Other)
  Sender: FDA-Public Use
  Company Number: IT-AUROBINDO-AUR-APL-2019-104836

PATIENT
  Age: 59 Year
  Sex: Male

DRUGS (2)
  1. ESCITALOPRAM FILM-COATED TABLETS [Suspect]
     Active Substance: ESCITALOPRAM OXALATE
     Indication: PRODUCT USED FOR UNKNOWN INDICATION
     Dosage: 120 MILLIGRAM,TOTAL
     Route: 048
  2. ZOLPIDEM [Suspect]
     Active Substance: ZOLPIDEM TARTRATE
     Indication: PRODUCT USED FOR UNKNOWN INDICATION
     Dosage: 120 MILLIGRAM,TOTAL
     Route: 048

REACTIONS (2)
  - Poisoning deliberate [Unknown]
  - Sopor [Unknown]

NARRATIVE: CASE EVENT DATE: 20190531
